FAERS Safety Report 4282104-X (Version None)
Quarter: 2004Q1

REPORT INFORMATION
  Report Type: 
  Country: None (occurrence: None)
  Receive Date: 20040130
  Receipt Date: 20030618
  Transmission Date: 20041129
  Serious: No
  Sender: FDA-Public Use
  Company Number: US-BRISTOL-MYERS SQUIBB COMPANY-12305652

PATIENT
  Age: 49 Year
  Sex: Female
  Weight: 56 kg

DRUGS (2)
  1. DESYREL [Suspect]
     Indication: INSOMNIA
     Route: 048
     Dates: start: 20030301
  2. MEGACE [Concomitant]

REACTIONS (1)
  - MUSCULOSKELETAL PAIN [None]
